FAERS Safety Report 5596304-X (Version None)
Quarter: 2007Q4

REPORT INFORMATION
  Report Type: 
  Country: None (occurrence: None)
  Receive Date: 20071218
  Receipt Date: 20070416
  Transmission Date: 20080405
  Serious: Yes (Other)
  Sender: FDA-Public Use
  Company Number: 2006066766

PATIENT
  Age: 69 Year
  Sex: Female

DRUGS (5)
  1. BEXTRA [Suspect]
     Indication: NERVE INJURY
  2. CELEBREX [Suspect]
     Indication: NERVE INJURY
  3. DARVOCET [Suspect]
     Indication: PAIN
  4. CHLORTHALIDONE [Concomitant]
  5. PAXIL [Concomitant]

REACTIONS (7)
  - DECREASED ACTIVITY [None]
  - DEPRESSION [None]
  - DRUG INEFFECTIVE [None]
  - DRUG INTOLERANCE [None]
  - GASTROINTESTINAL DISORDER [None]
  - NAUSEA [None]
  - OBESITY [None]
